FAERS Safety Report 9990758 (Version 1)
Quarter: 2014Q1

REPORT INFORMATION
  Report Type: Spontaneous
  Country: US (occurrence: None)
  Receive Date: 20140307
  Receipt Date: 20140307
  Transmission Date: 20141002
  Serious: No
  Sender: FDA-Public Use
  Company Number: None

PATIENT
  Age: 57 Year
  Sex: Male

DRUGS (1)
  1. AUBAGIO [Suspect]
     Dosage: 28 DAILY PO
     Route: 048
     Dates: start: 20130903, end: 20140301

REACTIONS (1)
  - Neuropathy peripheral [None]
